FAERS Safety Report 6429583-7 (Version None)
Quarter: 2009Q4

REPORT INFORMATION
  Report Type: 
  Country: None (occurrence: None)
  Receive Date: 20091103
  Receipt Date: 20091019
  Transmission Date: 20100525
  Serious: Yes (Hospitalization)
  Sender: FDA-Public Use
  Company Number: 2009AC000297

PATIENT
  Age: 67 Year
  Sex: Female

DRUGS (8)
  1. DIGOXIN [Suspect]
     Dosage: PO
     Route: 048
     Dates: start: 20071201
  2. ASPIRIN [Concomitant]
  3. COUMADIN [Concomitant]
  4. GLUCOVANCE [Concomitant]
  5. COREG [Concomitant]
  6. LASIX [Concomitant]
  7. LORCET-HD [Concomitant]
  8. FOSINOPRIL SODIUM [Concomitant]

REACTIONS (15)
  - ACHLORHYDRIA [None]
  - ANAEMIA [None]
  - BRADYCARDIA [None]
  - DIVERTICULUM [None]
  - ECONOMIC PROBLEM [None]
  - EMOTIONAL DISORDER [None]
  - HYPERTENSION [None]
  - HYPONATRAEMIA [None]
  - INJURY [None]
  - MALABSORPTION [None]
  - NEUROPATHY PERIPHERAL [None]
  - RENAL FAILURE ACUTE [None]
  - SURGERY [None]
  - THROMBOCYTOPENIA [None]
  - UNEVALUABLE EVENT [None]
